FAERS Safety Report 6192645-6 (Version None)
Quarter: 2009Q2

REPORT INFORMATION
  Report Type: 
  Country: None (occurrence: None)
  Receive Date: 20090518
  Receipt Date: 20090505
  Transmission Date: 20091009
  Serious: Yes (Hospitalization)
  Sender: FDA-Public Use
  Company Number: BE-AMGEN-US346119

PATIENT
  Age: 62 Year
  Sex: Female
  Weight: 70 kg

DRUGS (5)
  1. ENBREL [Suspect]
     Indication: RHEUMATOID ARTHRITIS
     Route: 058
     Dates: start: 20080131
  2. LEDERTREXATE [Suspect]
     Indication: RHEUMATOID ARTHRITIS
     Dates: start: 20070101
  3. DICLOFENAC [Concomitant]
  4. FOLIC ACID [Concomitant]
  5. MEDROL [Concomitant]
     Dosage: 4 MG - 2 MG PER DAY

REACTIONS (1)
  - CHOLESTASIS [None]
